FAERS Safety Report 8354327-1 (Version None)
Quarter: 2012Q2

REPORT INFORMATION
  Report Type: 
  Country: None (occurrence: None)
  Receive Date: 20120511
  Receipt Date: 20120509
  Transmission Date: 20120825
  Serious: Yes (Other)
  Sender: FDA-Public Use
  Company Number: IT-PFIZER INC-2012103464

PATIENT
  Age: 71 Year
  Sex: Female

DRUGS (2)
  1. AROMASIN [Suspect]
     Indication: BREAST CANCER
     Dosage: UNK
     Route: 048
     Dates: start: 20101125, end: 20120401
  2. LEVOTHYROXINE SODIUM [Concomitant]
     Dosage: UNK

REACTIONS (8)
  - RASH [None]
  - HEADACHE [None]
  - ONYCHOCLASIS [None]
  - TOOTH LOSS [None]
  - ARTHRALGIA [None]
  - INSOMNIA [None]
  - NECROSIS [None]
  - ABDOMINAL PAIN [None]
